FAERS Safety Report 15132155 (Version 2)
Quarter: 2018Q3

REPORT INFORMATION
  Report Type: Spontaneous
  Country: KR (occurrence: KR)
  Receive Date: 20180711
  Receipt Date: 20180713
  Transmission Date: 20181010
  Serious: Yes (Hospitalization, Other)
  Sender: FDA-Public Use
  Company Number: KR-009507513-1807KOR002887

PATIENT
  Sex: Female

DRUGS (28)
  1. KEYTRUDA [Suspect]
     Active Substance: PEMBROLIZUMAB
     Dosage: UNK
     Dates: start: 20180511
  2. DULCOLAX S [Concomitant]
     Dosage: TIMES 1, DAYS 1
     Dates: start: 20180621, end: 20180621
  3. DUPHALAC [Concomitant]
     Active Substance: LACTULOSE
     Dosage: TIMES 1, DAYS 1
     Dates: start: 20180626, end: 20180626
  4. MEGACE F [Concomitant]
     Dosage: TIMES 1, DAYS 35
     Dates: start: 20180621, end: 20180626
  5. MAGO [Concomitant]
     Dosage: TIMES 4, DAYS 1
     Dates: start: 20180620, end: 20180620
  6. MAGO [Concomitant]
     Dosage: TIMES 1, DAYS 1
     Dates: start: 20180626, end: 20180626
  7. GASOCOL [Concomitant]
     Dosage: 8 TIMES, 1 DAY
     Dates: start: 20180620, end: 20180620
  8. CIA CAPSULES [Concomitant]
     Dosage: 3 TIMES, 3 DAYS
     Dates: start: 20180623, end: 20180625
  9. ABSTRAL [Concomitant]
     Active Substance: FENTANYL CITRATE
     Dosage: 1 TIMES, 4 DAYS
     Dates: start: 20180620, end: 20180626
  10. YAL (DOCUSATE SODIUM) [Concomitant]
     Dosage: TIMES 1, DAYS 1
     Dates: start: 20180619, end: 20180619
  11. ABSTRAL [Concomitant]
     Active Substance: FENTANYL CITRATE
     Dosage: 2 TIMES, DAYS 1
     Dates: start: 20180625, end: 20180625
  12. KEYTRUDA [Suspect]
     Active Substance: PEMBROLIZUMAB
     Dosage: UNK
     Dates: start: 20180330
  13. MEGACE F [Concomitant]
     Dosage: TIMES 2, DAYS 1
     Dates: start: 20180620, end: 20180620
  14. MAGO [Concomitant]
     Dosage: TIMES 3, DAYS 35
     Dates: start: 20180621, end: 20180626
  15. NEXIUM [Concomitant]
     Active Substance: ESOMEPRAZOLE MAGNESIUM
     Dosage: TIMES 1, DAYS 5
     Dates: start: 20180621, end: 20180625
  16. CIA CAPSULES [Concomitant]
     Dosage: 4 TIMES, 1 DAY
     Dates: start: 20180622, end: 20180622
  17. KEYTRUDA [Suspect]
     Active Substance: PEMBROLIZUMAB
     Dosage: UNK
     Dates: start: 20180420
  18. KEYTRUDA [Suspect]
     Active Substance: PEMBROLIZUMAB
     Dosage: UNK
     Dates: start: 20180601
  19. CIA CAPSULES [Concomitant]
     Dosage: 6 TIMES, 2 DAYS
     Dates: start: 20180620, end: 20180621
  20. CIA CAPSULES [Concomitant]
     Dosage: 1 TIMES, 1 DAY
     Dates: start: 20180626, end: 20180626
  21. ABSTRAL [Concomitant]
     Active Substance: FENTANYL CITRATE
     Dosage: 4 TIMES, DAYS 30
     Dates: start: 20180626, end: 20180626
  22. DULCOLAX S [Concomitant]
     Dosage: TIMES 2, DAYS 20
     Dates: start: 20180626, end: 20180626
  23. DUPHALAC [Concomitant]
     Active Substance: LACTULOSE
     Dosage: TIMES 3, DAYS 5
     Dates: start: 20180621, end: 20180625
  24. KEYTRUDA [Suspect]
     Active Substance: PEMBROLIZUMAB
     Dosage: UNK
     Dates: start: 20180626
  25. NEXIUM [Concomitant]
     Active Substance: ESOMEPRAZOLE MAGNESIUM
     Dosage: TIMES 2, DAYS 1
     Dates: start: 20180620, end: 20180620
  26. KEYTRUDA [Suspect]
     Active Substance: PEMBROLIZUMAB
     Indication: CERVIX CARCINOMA
     Dosage: UNK
     Dates: start: 20180308
  27. GASOCOL [Concomitant]
     Dosage: 6 TIMES, 1 DAY
     Dates: start: 20180621, end: 20180621
  28. DUROGESIC [Concomitant]
     Active Substance: FENTANYL
     Dosage: DOSE DESCRIPTION: STRENGTH: 12MCG/H 5.25CM2
     Dates: start: 20180625, end: 20180626

REACTIONS (4)
  - Transfusion [Unknown]
  - Constipation [Unknown]
  - Product use in unapproved indication [Unknown]
  - Anaesthesia [Unknown]

NARRATIVE: CASE EVENT DATE: 2018
